FAERS Safety Report 12892412 (Version 1)
Quarter: 2016Q4

REPORT INFORMATION
  Report Type: Spontaneous
  Country: US (occurrence: US)
  Receive Date: 20161028
  Receipt Date: 20161028
  Transmission Date: 20170207
  Serious: Yes (Hospitalization, Disabling, Other)
  Sender: FDA-Public Use
  Company Number: US-009507513-0911USA03513

PATIENT
  Sex: Female
  Weight: 73.48 kg

DRUGS (3)
  1. FOSAMAX [Suspect]
     Active Substance: ALENDRONATE SODIUM
     Dosage: 70 MG, UNKNOWN
     Route: 048
     Dates: start: 20080417, end: 20090408
  2. ALENDRONATE SODIUM. [Suspect]
     Active Substance: ALENDRONATE SODIUM
     Indication: OSTEOPENIA
     Dosage: 70 MG, UNKNOWN
     Route: 048
     Dates: start: 20080702, end: 200901
  3. FOSAMAX [Suspect]
     Active Substance: ALENDRONATE SODIUM
     Indication: OSTEOPENIA
     Dosage: 70 MG, QW
     Route: 048
     Dates: start: 20030812, end: 20090518

REACTIONS (38)
  - Low turnover osteopathy [Unknown]
  - Arthralgia [Unknown]
  - Depressive symptom [Unknown]
  - Sinus disorder [Unknown]
  - Femur fracture [Unknown]
  - Device failure [Unknown]
  - Headache [Unknown]
  - Femur fracture [Unknown]
  - Restless legs syndrome [Unknown]
  - Femur fracture [Unknown]
  - Arthropathy [Unknown]
  - Gingivitis [Unknown]
  - Cardiac disorder [Unknown]
  - Treatment noncompliance [Unknown]
  - Anaemia postoperative [Unknown]
  - Femur fracture [Not Recovered/Not Resolved]
  - Stress fracture [Unknown]
  - Cataract [Unknown]
  - Haemorrhagic anaemia [Unknown]
  - Fracture nonunion [Unknown]
  - Tachycardia [Recovered/Resolved]
  - Supraventricular tachycardia [Unknown]
  - Osteoporosis [Not Recovered/Not Resolved]
  - Bursitis [Not Recovered/Not Resolved]
  - Procedural hypertension [Recovered/Resolved]
  - Anaemia postoperative [Unknown]
  - Corneal abrasion [Unknown]
  - Cardiac disorder [Unknown]
  - Fatigue [Not Recovered/Not Resolved]
  - Cataract [Unknown]
  - Hypothyroidism [Not Recovered/Not Resolved]
  - Tooth extraction [Unknown]
  - Keratitis [Unknown]
  - Anxiety [Unknown]
  - Nocturia [Unknown]
  - Fracture nonunion [Unknown]
  - Major depression [Not Recovered/Not Resolved]
  - Cataract [Unknown]

NARRATIVE: CASE EVENT DATE: 2004
